FAERS Safety Report 4742425-0 (Version None)
Quarter: 2005Q3

REPORT INFORMATION
  Report Type: 
  Country: None (occurrence: None)
  Receive Date: 20050811
  Receipt Date: 20050802
  Transmission Date: 20060218
  Serious: Yes (Other)
  Sender: FDA-Public Use
  Company Number: ES-BRISTOL-MYERS SQUIBB COMPANY-13060694

PATIENT
  Age: 68 Year
  Sex: Male

DRUGS (5)
  1. LIPLAT TABS [Suspect]
     Indication: HYPERCHOLESTEROLAEMIA
     Route: 048
     Dates: start: 20041210, end: 20050602
  2. ADIRO [Concomitant]
     Route: 048
     Dates: start: 20041210
  3. PLAVIX [Concomitant]
     Route: 048
     Dates: start: 20041210
  4. ATENOLOL [Concomitant]
     Route: 048
     Dates: start: 20041210
  5. OMEPRAZEN [Concomitant]
     Route: 048
     Dates: start: 20050202

REACTIONS (3)
  - BLOOD CREATINE PHOSPHOKINASE INCREASED [None]
  - HAEMATOMA [None]
  - MYALGIA [None]
